FAERS Safety Report 21040813 (Version 1)
Quarter: 2022Q3

REPORT INFORMATION
  Report Type: Spontaneous
  Country: CA (occurrence: CA)
  Receive Date: 20220704
  Receipt Date: 20220704
  Transmission Date: 20221026
  Serious: Yes (Other)
  Sender: FDA-Public Use
  Company Number: CA-JNJFOC-20220701907

PATIENT
  Age: 28 Year
  Sex: Male
  Weight: 69 kg

DRUGS (1)
  1. REMICADE [Suspect]
     Active Substance: INFLIXIMAB
     Indication: Colitis ulcerative
     Route: 041

REACTIONS (4)
  - Flat affect [Not Recovered/Not Resolved]
  - Depression [Not Recovered/Not Resolved]
  - Mental disorder [Not Recovered/Not Resolved]
  - Weight increased [Not Recovered/Not Resolved]
